FAERS Safety Report 21218038 (Version 1)
Quarter: 2022Q3

REPORT INFORMATION
  Report Type: Spontaneous
  Country: US (occurrence: None)
  Receive Date: 20220815
  Receipt Date: 20220815
  Transmission Date: 20221027
  Serious: No
  Sender: FDA-Public Use
  Company Number: None

PATIENT
  Age: 87 Year
  Sex: Male
  Weight: 80.29 kg

DRUGS (26)
  1. TEMOZOLOMIDE [Suspect]
     Active Substance: TEMOZOLOMIDE
     Indication: Brain neoplasm malignant
     Dosage: OTHER FREQUENCY : FOR 5 DAYS;?
     Route: 048
     Dates: start: 202203
  2. ALBUTEROL SULFATE [Concomitant]
     Active Substance: ALBUTEROL SULFATE
  3. ATORVASTATIN CALCIUM [Concomitant]
     Active Substance: ATORVASTATIN CALCIUM
  4. BACTRIM DS [Concomitant]
     Active Substance: SULFAMETHOXAZOLE\TRIMETHOPRIM
  5. BUTALBITAL, ACETAMINOPHEN, AND CAFFEINE [Concomitant]
     Active Substance: ACETAMINOPHEN\BUTALBITAL\CAFFEINE
  6. CALTRATE WITH VITAMIN D [Concomitant]
     Active Substance: CALCIUM CARBONATE\CHOLECALCIFEROL
  7. DECADRON [Concomitant]
     Active Substance: DEXAMETHASONE
  8. DEXAMETHASONE [Concomitant]
     Active Substance: DEXAMETHASONE
  9. DULERA INH [Concomitant]
  10. DUTASTERIDE [Concomitant]
     Active Substance: DUTASTERIDE
  11. FLONASE [Concomitant]
     Active Substance: FLUTICASONE PROPIONATE
  12. FLUCONAZOLE [Concomitant]
     Active Substance: FLUCONAZOLE
  13. ACETAMINOPHEN\HYDROCODONE [Concomitant]
     Active Substance: ACETAMINOPHEN\HYDROCODONE
  14. LIDODERM [Concomitant]
     Active Substance: LIDOCAINE
  15. LIPITOR [Concomitant]
     Active Substance: ATORVASTATIN CALCIUM
  16. VITAMINS [Concomitant]
     Active Substance: VITAMINS
  17. NORCO [Concomitant]
     Active Substance: ACETAMINOPHEN\HYDROCODONE BITARTRATE
  18. OXYCODONE [Concomitant]
     Active Substance: OXYCODONE
  19. PROCHLORPERAZINE [Concomitant]
     Active Substance: PROCHLORPERAZINE
  20. PROTONIX [Concomitant]
     Active Substance: PANTOPRAZOLE SODIUM
  21. SENOKOT [Concomitant]
     Active Substance: SENNOSIDES
  22. SINGULAIR [Concomitant]
     Active Substance: MONTELUKAST SODIUM
  23. SPIRIVA [Concomitant]
     Active Substance: TIOTROPIUM BROMIDE MONOHYDRATE
  24. TYLENOL [Concomitant]
     Active Substance: ACETAMINOPHEN
  25. VENTOLIN [Concomitant]
     Active Substance: ALBUTEROL SULFATE
  26. VISTARIL [Concomitant]
     Active Substance: HYDROXYZINE PAMOATE

REACTIONS (2)
  - Anaemia [None]
  - Platelet count decreased [None]
